FAERS Safety Report 6690479-7 (Version None)
Quarter: 2010Q2

REPORT INFORMATION
  Report Type: 
  Country: None (occurrence: None)
  Receive Date: 20100421
  Receipt Date: 20100408
  Transmission Date: 20101027
  Serious: Yes (Hospitalization)
  Sender: FDA-Public Use
  Company Number: NL-MEDIMMUNE-MEDI-0011061

PATIENT
  Sex: Male

DRUGS (2)
  1. SYNAGIS [Suspect]
     Route: 030
     Dates: start: 20090907, end: 20100311
  2. SYNAGIS [Suspect]
     Route: 030
     Dates: start: 20100408

REACTIONS (3)
  - OXYGEN SATURATION DECREASED [None]
  - RESPIRATORY TRACT INFECTION [None]
  - VOMITING [None]
